FAERS Safety Report 11701539 (Version 2)
Quarter: 2015Q4

REPORT INFORMATION
  Report Type: Spontaneous
  Country: US (occurrence: US)
  Receive Date: 20151105
  Receipt Date: 20151105
  Transmission Date: 20160304
  Serious: Yes (Other)
  Sender: FDA-Public Use
  Company Number: US-MALLINCKRODT-T201500261

PATIENT
  Sex: Female
  Weight: 114 kg

DRUGS (7)
  1. ZOLOFT [Concomitant]
     Active Substance: SERTRALINE HYDROCHLORIDE
  2. METFORMIN [Concomitant]
     Active Substance: METFORMIN HYDROCHLORIDE
  3. FENTANYL TRANSDERMAL SYSTEM [Suspect]
     Active Substance: FENTANYL
     Indication: BACK PAIN
     Dosage: 75 MCG/HR, ONE Q72H
     Route: 062
     Dates: end: 20140909
  4. LORATADINE. [Concomitant]
     Active Substance: LORATADINE
  5. FENTANYL TRANSDERMAL SYSTEM [Suspect]
     Active Substance: FENTANYL
     Dosage: 100 MCG/HR, ONE Q72H
     Route: 062
     Dates: start: 20150108
  6. CLONAZEPAM. [Concomitant]
     Active Substance: CLONAZEPAM
  7. RITALIN [Concomitant]
     Active Substance: METHYLPHENIDATE HYDROCHLORIDE

REACTIONS (4)
  - Drug withdrawal syndrome [Recovering/Resolving]
  - Drug effect decreased [Not Recovered/Not Resolved]
  - Seizure [Unknown]
  - Urinary incontinence [Recovering/Resolving]

NARRATIVE: CASE EVENT DATE: 2014
